FAERS Safety Report 20975182 (Version 4)
Quarter: 2023Q1

REPORT INFORMATION
  Report Type: Report from Study
  Country: JP (occurrence: JP)
  Receive Date: 20220617
  Receipt Date: 20230330
  Transmission Date: 20230418
  Serious: Yes (Hospitalization, Other)
  Sender: FDA-Public Use
  Company Number: JP-ASTELLAS-2022JP008889

PATIENT
  Age: 84 Year
  Sex: Male
  Weight: 55 kg

DRUGS (4)
  1. ENFORTUMAB VEDOTIN [Suspect]
     Active Substance: ENFORTUMAB VEDOTIN
     Indication: Metastases to lung
     Dosage: 1.25 MG/KG/DAY, UNKNOWN FREQ.
     Route: 042
     Dates: start: 20220215, end: 20220419
  2. ENFORTUMAB VEDOTIN [Suspect]
     Active Substance: ENFORTUMAB VEDOTIN
     Indication: Retroperitoneal neoplasm
     Dosage: 1.25 MG/KG/DAY, UNKNOWN FREQ.
     Route: 042
     Dates: start: 20220510, end: 20220614
  3. ENFORTUMAB VEDOTIN [Suspect]
     Active Substance: ENFORTUMAB VEDOTIN
     Indication: Transitional cell carcinoma
  4. ZOSYN [Concomitant]
     Active Substance: PIPERACILLIN SODIUM\TAZOBACTAM SODIUM
     Indication: Neutropenia
     Route: 050
     Dates: start: 20220405, end: 20220411

REACTIONS (3)
  - Neutropenia [Recovered/Resolved]
  - Febrile neutropenia [Recovered/Resolved]
  - Myelosuppression [Unknown]

NARRATIVE: CASE EVENT DATE: 20220404
